FAERS Safety Report 4519860-9 (Version None)
Quarter: 2004Q4

REPORT INFORMATION
  Report Type: 
  Country: None (occurrence: None)
  Receive Date: 20041207
  Receipt Date: 20041125
  Transmission Date: 20050328
  Serious: Yes (Life-Threatening, Hospitalization, Disabling)
  Sender: FDA-Public Use
  Company Number: 200413606JP

PATIENT
  Age: 77 Year
  Sex: Male

DRUGS (19)
  1. KETEK [Suspect]
     Indication: BRONCHITIS
     Route: 048
     Dates: start: 20041028
  2. HACHIMIJIO-GAN [Concomitant]
     Route: 048
  3. HARNAL [Concomitant]
     Route: 048
  4. BAYASPIRIN [Concomitant]
     Route: 048
  5. UBRETID [Concomitant]
     Route: 048
  6. SHAKUYAKUKANZOUTOU [Concomitant]
     Route: 048
  7. MUCOSOLVAN [Concomitant]
     Route: 048
  8. HOKUNALIN [Concomitant]
     Route: 003
  9. PREDNISOLONE [Concomitant]
     Route: 048
  10. MYONAL [Concomitant]
     Route: 048
  11. LOXONIN [Concomitant]
     Route: 048
  12. AMOBAN [Concomitant]
     Route: 048
  13. VOLTAREN [Concomitant]
  14. KETOPROFEN [Concomitant]
     Route: 003
  15. VOLTAREN SUPPOSITORIEN [Concomitant]
     Route: 054
  16. NORVASC [Concomitant]
     Route: 048
  17. BLOPRESS [Concomitant]
     Route: 048
  18. LIPOVAS [Concomitant]
     Route: 048
  19. LANSOPRAZOLE [Concomitant]
     Indication: ABDOMINAL PAIN UPPER
     Route: 048
     Dates: start: 20020801

REACTIONS (2)
  - DEPRESSED LEVEL OF CONSCIOUSNESS [None]
  - ROAD TRAFFIC ACCIDENT [None]
